FAERS Safety Report 13834132 (Version 2)
Quarter: 2017Q3

REPORT INFORMATION
  Report Type: Spontaneous
  Country: JP (occurrence: JP)
  Receive Date: 20170804
  Receipt Date: 20170901
  Transmission Date: 20171127
  Serious: Yes (Hospitalization, Other)
  Sender: FDA-Public Use
  Company Number: JP-ALXN-A201708395AA

PATIENT
  Age: 19 Year
  Sex: Male

DRUGS (3)
  1. SOLIRIS [Suspect]
     Active Substance: ECULIZUMAB
     Dosage: 1200 UNK, DAILY
     Dates: start: 20170807
  2. PREDONINE [Suspect]
     Active Substance: PREDNISOLONE
     Indication: HAEMOLYSIS
     Dosage: 60 MG, UNK
     Route: 042
     Dates: start: 201707, end: 201707
  3. SOLIRIS [Suspect]
     Active Substance: ECULIZUMAB
     Indication: HAEMOLYTIC URAEMIC SYNDROME
     Dosage: 900 UNK, DAILY
     Route: 042
     Dates: start: 20170710, end: 20170731

REACTIONS (2)
  - Pain in extremity [Recovered/Resolved]
  - Thrombosis [Recovering/Resolving]

NARRATIVE: CASE EVENT DATE: 20170724
